FAERS Safety Report 8823899 (Version 1)
Quarter: 2012Q4

REPORT INFORMATION
  Report Type: 
  Country: US (occurrence: US)
  Receive Date: 20121003
  Receipt Date: 20121003
  Transmission Date: 20130627
  Serious: No
  Sender: FDA-Public Use
  Company Number: US-009507513-1210USA001940

PATIENT
  Sex: Male

DRUGS (3)
  1. MIRALAX [Suspect]
     Indication: CONSTIPATION
     Dosage: UNK UNK, bid
     Route: 048
     Dates: start: 20120908
  2. MIRALAX [Suspect]
     Indication: MEDICAL OBSERVATION
  3. BENADRYL [Concomitant]

REACTIONS (5)
  - Chills [Unknown]
  - Tremor [Unknown]
  - Nausea [Unknown]
  - Urticaria [Unknown]
  - Pruritus [Unknown]
